FAERS Safety Report 22342101 (Version 3)
Quarter: 2023Q2

REPORT INFORMATION
  Report Type: Report from Study
  Country: US (occurrence: US)
  Receive Date: 20230519
  Receipt Date: 20230619
  Transmission Date: 20230721
  Serious: Yes (Hospitalization, Other)
  Sender: FDA-Public Use
  Company Number: US-ABBVIE-4771212

PATIENT
  Sex: Female
  Weight: 46.266 kg

DRUGS (2)
  1. CREON [Suspect]
     Active Substance: PANCRELIPASE AMYLASE\PANCRELIPASE LIPASE\PANCRELIPASE PROTEASE
     Indication: Pancreatic carcinoma
     Dosage: FORM STRENGTH: 36000 UNIT
     Route: 048
     Dates: start: 20230601
  2. CREON [Suspect]
     Active Substance: PANCRELIPASE AMYLASE\PANCRELIPASE LIPASE\PANCRELIPASE PROTEASE
     Indication: Pancreatic carcinoma
     Dosage: FORM STRENGTH: 36000 UNIT, TWO CAPSULES PER MEAL AND ONE CAPSULES PER SNACK
     Route: 048

REACTIONS (8)
  - Biliary obstruction [Recovered/Resolved]
  - Weight decreased [Not Recovered/Not Resolved]
  - Diarrhoea [Not Recovered/Not Resolved]
  - Abdominal distension [Recovered/Resolved]
  - Drug ineffective [Not Recovered/Not Resolved]
  - Ascites [Recovered/Resolved]
  - Hypophagia [Not Recovered/Not Resolved]
  - Bile duct cancer [Unknown]

NARRATIVE: CASE EVENT DATE: 20230101
